FAERS Safety Report 21930804 (Version 1)
Quarter: 2023Q1

REPORT INFORMATION
  Report Type: Spontaneous
  Country: FR (occurrence: FR)
  Receive Date: 20230131
  Receipt Date: 20230131
  Transmission Date: 20230417
  Serious: Yes (Hospitalization)
  Sender: FDA-Public Use
  Company Number: None

PATIENT
  Age: 35 Year
  Sex: Male

DRUGS (10)
  1. LANSOPRAZOLE [Suspect]
     Active Substance: LANSOPRAZOLE
     Indication: Gastritis
     Dosage: 30 MILLIGRAM, QD
     Route: 048
     Dates: start: 201907
  2. ATORVASTATIN [Suspect]
     Active Substance: ATORVASTATIN
     Indication: Dyslipidaemia
     Dosage: 10 MILLIGRAM, QD
     Route: 048
     Dates: start: 201907
  3. NEBIVOLOL [Suspect]
     Active Substance: NEBIVOLOL
     Indication: Product used for unknown indication
     Dosage: 5 MILLIGRAM, QD
     Route: 048
     Dates: start: 2018
  4. PREDNISONE [Suspect]
     Active Substance: PREDNISONE
     Indication: Prophylaxis against transplant rejection
     Dosage: 6 MILLIGRAM, QD
     Route: 048
     Dates: start: 201907
  5. PRIMPERAN [Suspect]
     Active Substance: METOCLOPRAMIDE HYDROCHLORIDE
     Indication: Nausea
     Dosage: 30 MILLIGRAM, QD
     Route: 048
     Dates: start: 202205
  6. KARDEGIC [Suspect]
     Active Substance: ASPIRIN DL-LYSINE
     Indication: Cardiovascular event prophylaxis
     Dosage: 75 MILLIGRAM, QD
     Route: 048
     Dates: start: 201909
  7. TACROLIMUS [Suspect]
     Active Substance: TACROLIMUS
     Indication: Prophylaxis against transplant rejection
     Dosage: 16 MILLIGRAM, QD
     Route: 048
     Dates: start: 201907
  8. CELLCEPT [Suspect]
     Active Substance: MYCOPHENOLATE MOFETIL
     Indication: Prophylaxis against transplant rejection
     Dosage: 1000 MILLIGRAM, QD
     Route: 048
     Dates: start: 201907
  9. MAGNESIUM [Suspect]
     Active Substance: MAGNESIUM
     Indication: Mineral supplementation
     Dosage: 1 DOSAGE FORM, QD
     Route: 048
     Dates: start: 202110
  10. IRBESARTAN [Suspect]
     Active Substance: IRBESARTAN
     Indication: Hypertension
     Dosage: 75 MILLIGRAM, QD
     Route: 048
     Dates: start: 2020

REACTIONS (3)
  - Pancreatitis [Recovering/Resolving]
  - Vomiting [Recovered/Resolved]
  - Graft complication [Recovered/Resolved]

NARRATIVE: CASE EVENT DATE: 20220501
